FAERS Safety Report 6005621-0 (Version None)
Quarter: 2008Q4

REPORT INFORMATION
  Report Type: 
  Country: None (occurrence: None)
  Receive Date: 20081216
  Receipt Date: 20081216
  Transmission Date: 20090506
  Serious: Yes (Life-Threatening)
  Sender: FDA-Public Use
  Company Number: None

PATIENT
  Sex: Female
  Weight: 85.2762 kg

DRUGS (5)
  1. OXCARBAZEPINE [Suspect]
     Indication: MOOD SWINGS
     Dosage: 600 MG BID PO
     Route: 048
     Dates: start: 20070702, end: 20080306
  2. BUSPIRONE HCL [Concomitant]
  3. COGENTIN [Concomitant]
  4. SEROQUEL [Concomitant]
  5. INVEGA [Concomitant]

REACTIONS (8)
  - BLOOD CHLORIDE DECREASED [None]
  - BLOOD SODIUM DECREASED [None]
  - CONFUSIONAL STATE [None]
  - DELUSION [None]
  - DISTURBANCE IN ATTENTION [None]
  - NAUSEA [None]
  - SEDATION [None]
  - VOMITING [None]
